FAERS Safety Report 7690977-3 (Version None)
Quarter: 2011Q3

REPORT INFORMATION
  Report Type: 
  Country: None (occurrence: None)
  Receive Date: 20110818
  Receipt Date: 20110817
  Transmission Date: 20111222
  Serious: Yes (Other)
  Sender: FDA-Public Use
  Company Number: US-PFIZER INC-2011189749

PATIENT
  Sex: Male
  Weight: 86.168 kg

DRUGS (4)
  1. DILANTIN [Suspect]
     Indication: CONVULSION
     Dosage: 200MG IN THE MORNING, 300MG AT NIGHT
     Route: 048
     Dates: start: 20070101
  2. LEVETIRACETAM [Suspect]
     Indication: CONVULSION
     Dosage: 500 MG, 2X/DAY
  3. HYDROCODONE [Concomitant]
     Indication: MUSCULOSKELETAL PAIN
     Dosage: 0.5 MG, AS NEEDED
  4. KLONOPIN [Concomitant]
     Indication: EMOTIONAL DISORDER
     Dosage: 0.5 MG, AS NEEDED

REACTIONS (6)
  - PAROSMIA [None]
  - CONVULSION [None]
  - EMOTIONAL DISORDER [None]
  - INFLUENZA LIKE ILLNESS [None]
  - DYSGEUSIA [None]
  - TARDIVE DYSKINESIA [None]
